FAERS Safety Report 9839090 (Version 2)
Quarter: 2014Q3

REPORT INFORMATION
  Report Type: Spontaneous
  Country: US (occurrence: US)
  Receive Date: 20140123
  Receipt Date: 20140808
  Transmission Date: 20150326
  Serious: Yes (Hospitalization, Other)
  Sender: FDA-Public Use
  Company Number: US-009507513-1401USA009993

PATIENT
  Sex: Female

DRUGS (1)
  1. NUVARING [Suspect]
     Active Substance: ETHINYL ESTRADIOL\ETONOGESTREL
     Indication: PRODUCT USED FOR UNKNOWN INDICATION
     Dosage: 0.12-0.015 VAGINAL RING, TO INSERT 1 RING FOR 3 WEEKS AND REMOVE FOR 1 WEEK ON MONTHLY CYCLE
     Route: 067
     Dates: start: 20100920, end: 201109

REACTIONS (6)
  - Electrocution [Unknown]
  - Insomnia [Unknown]
  - Pulmonary embolism [Unknown]
  - Joint dislocation [Unknown]
  - Cholecystectomy [Unknown]
  - Back pain [Unknown]

NARRATIVE: CASE EVENT DATE: 20111003
